FAERS Safety Report 9445451 (Version 2)
Quarter: 2013Q3

REPORT INFORMATION
  Report Type: Spontaneous
  Country: US (occurrence: US)
  Receive Date: 20130807
  Receipt Date: 20130918
  Transmission Date: 20140515
  Serious: No
  Sender: FDA-Public Use
  Company Number: US-PFIZER INC-2013226667

PATIENT
  Age: 75 Year
  Sex: Male
  Weight: 61.22 kg

DRUGS (5)
  1. SUTENT [Suspect]
     Indication: CARCINOID TUMOUR OF THE PANCREAS
     Dosage: UNK
     Dates: start: 201304
  2. CREON [Suspect]
     Indication: PANCREATIC ENZYME ABNORMALITY
     Dosage: UNK
  3. LOVENOX [Concomitant]
     Indication: THROMBOSIS
     Dosage: UNK
  4. ATORVASTATIN CALCIUM [Concomitant]
     Dosage: UNK
  5. POTASSIUM [Concomitant]
     Dosage: UNK

REACTIONS (7)
  - Disease progression [Unknown]
  - Carcinoid tumour of the pancreas [Unknown]
  - Fluid retention [Unknown]
  - Swelling [Unknown]
  - Fatigue [Not Recovered/Not Resolved]
  - Dysphagia [Unknown]
  - Asthenia [Not Recovered/Not Resolved]
